FAERS Safety Report 6876911-4 (Version None)
Quarter: 2010Q3

REPORT INFORMATION
  Report Type: 
  Country: None (occurrence: None)
  Receive Date: 20100727
  Receipt Date: 20100727
  Transmission Date: 20110219
  Serious: Yes (Other)
  Sender: FDA-Public Use
  Company Number: None

PATIENT
  Age: 50 Year
  Sex: Male
  Weight: 100 kg

DRUGS (1)
  1. SMART PUMP N/A ALARIS [Suspect]

REACTIONS (4)
  - DEVICE COMPONENT ISSUE [None]
  - HEADACHE [None]
  - HYPERTENSION [None]
  - OVERDOSE [None]
